FAERS Safety Report 24063985 (Version 1)
Quarter: 2024Q3

REPORT INFORMATION
  Report Type: Spontaneous
  Country: IT (occurrence: None)
  Receive Date: 20240709
  Receipt Date: 20240709
  Transmission Date: 20241017
  Serious: Yes (Hospitalization)
  Sender: ASTRAZENECA
  Company Number: 2024A150314

PATIENT
  Age: 48 Year
  Sex: Female
  Weight: 45 kg

DRUGS (2)
  1. SAPHNELO [Suspect]
     Active Substance: ANIFROLUMAB-FNIA
     Indication: Systemic lupus erythematosus
     Dosage: 300 MG IV EVERY 28 DAYS
     Route: 042
     Dates: start: 20230802
  2. TACROLIMUS [Concomitant]
     Active Substance: TACROLIMUS
     Indication: Systemic lupus erythematosus
     Dosage: 2.5 MG/TWO
     Route: 048
     Dates: start: 2023

REACTIONS (1)
  - Intestinal angina [Recovered/Resolved with Sequelae]

NARRATIVE: CASE EVENT DATE: 20240101
